FAERS Safety Report 8605541-9 (Version None)
Quarter: 2012Q3

REPORT INFORMATION
  Report Type: 
  Country: None (occurrence: None)
  Receive Date: 20120820
  Receipt Date: 20120809
  Transmission Date: 20120928
  Serious: Yes (Other)
  Sender: FDA-Public Use
  Company Number: US-ASTRAZENECA-2012SE55341

PATIENT
  Age: 50 Year
  Sex: Male

DRUGS (2)
  1. OMEPRAZOLE [Suspect]
     Route: 048
  2. NEXIUM [Suspect]
     Route: 048

REACTIONS (12)
  - INSOMNIA [None]
  - ERUCTATION [None]
  - ULCER [None]
  - BACK DISORDER [None]
  - DRUG INEFFECTIVE [None]
  - DEHYDRATION [None]
  - REGURGITATION [None]
  - APHAGIA [None]
  - GASTRIC DISORDER [None]
  - DYSPEPSIA [None]
  - VOMITING [None]
  - DRUG DOSE OMISSION [None]
